FAERS Safety Report 16794905 (Version 16)
Quarter: 2022Q2

REPORT INFORMATION
  Report Type: Spontaneous
  Country: US (occurrence: US)
  Receive Date: 20190911
  Receipt Date: 20220629
  Transmission Date: 20220721
  Serious: Yes (Disabling, Other)
  Sender: FDA-Public Use
  Company Number: US-PFIZER INC-2019387533

PATIENT
  Age: 53 Year
  Sex: Female
  Weight: 67.13 kg

DRUGS (3)
  1. PREMPRO [Suspect]
     Active Substance: ESTROGENS, CONJUGATED\MEDROXYPROGESTERONE ACETATE
     Indication: Hormone replacement therapy
     Dosage: 1 DF, 1X/DAY
     Route: 048
  2. PREMPRO [Suspect]
     Active Substance: ESTROGENS, CONJUGATED\MEDROXYPROGESTERONE ACETATE
     Indication: Genital atrophy
  3. PREMPRO [Suspect]
     Active Substance: ESTROGENS, CONJUGATED\MEDROXYPROGESTERONE ACETATE
     Indication: Osteoporosis prophylaxis

REACTIONS (14)
  - Multiple sclerosis [Unknown]
  - Depression [Unknown]
  - Thrombosis [Unknown]
  - Central nervous system lesion [Unknown]
  - Migraine [Unknown]
  - Illness [Unknown]
  - Ocular discomfort [Unknown]
  - Limb discomfort [Unknown]
  - Impaired driving ability [Unknown]
  - COVID-19 [Unknown]
  - Therapeutic response unexpected [Unknown]
  - Visual impairment [Unknown]
  - Asthenia [Unknown]
  - Product dose omission issue [Unknown]
